FAERS Safety Report 10969856 (Version 5)
Quarter: 2015Q2

REPORT INFORMATION
  Report Type: Spontaneous
  Country: US (occurrence: US)
  Receive Date: 20150331
  Receipt Date: 20150513
  Transmission Date: 20150821
  Serious: No
  Sender: FDA-Public Use
  Company Number: US-PFIZER INC-2015100317

PATIENT
  Age: 59 Year
  Sex: Female
  Weight: 52 kg

DRUGS (23)
  1. METOCLOPRAMIDE HCL CF [Concomitant]
     Indication: NAUSEA
     Dosage: 2.5 MG, UNK
     Route: 048
  2. LUNESTA [Concomitant]
     Active Substance: ESZOPICLONE
     Dosage: 3 MG, 1X/DAY AT BEDTIME
     Route: 048
     Dates: start: 20150227
  3. STOOL SOFTENER [Concomitant]
     Active Substance: DOCUSATE CALCIUM
     Dosage: 100 MG, DAILY
     Route: 048
     Dates: start: 20141229
  4. RELPAX [Suspect]
     Active Substance: ELETRIPTAN HYDROBROMIDE
     Dosage: 1-2 TAB Q WEEK
     Route: 048
     Dates: start: 20150227
  5. BOTOX [Concomitant]
     Active Substance: ONABOTULINUMTOXINA
     Indication: MIGRAINE
  6. ACIDOPHILUS [Concomitant]
     Active Substance: LACTOBACILLUS ACIDOPHILUS
     Dosage: (3 BILLION LIVE CELLS 1 X DAILY)
     Route: 048
     Dates: start: 20141219
  7. MYRBETRIQ [Concomitant]
     Active Substance: MIRABEGRON
     Dosage: 25 MG, ALTERNATE DAY
     Route: 048
     Dates: start: 20141218
  8. PROMETHAZINE [Concomitant]
     Active Substance: PROMETHAZINE\PROMETHAZINE HYDROCHLORIDE
     Dosage: 25 MG, AS NEEDED EVERY 6 HOURS
     Route: 048
     Dates: start: 20150331
  9. VITAMIN B12 [Concomitant]
     Active Substance: CYANOCOBALAMIN
     Dosage: 50 USP 1 X DAILY
     Dates: start: 20141219
  10. ESTRACE 0.01 % [Concomitant]
     Dosage: 1 G, 2X/WEEK
     Route: 067
     Dates: start: 20141218
  11. LYSINE [Concomitant]
     Active Substance: LYSINE
     Dosage: 1 DF, DAILY
     Dates: start: 20141219
  12. MAGNESIUM [Concomitant]
     Active Substance: MAGNESIUM
     Dosage: 500 MG, DAILY
     Dates: start: 20141219
  13. RELPAX [Suspect]
     Active Substance: ELETRIPTAN HYDROBROMIDE
     Indication: MIGRAINE
     Dosage: 40 MG
     Route: 048
     Dates: start: 200601
  14. RESTORIL [Concomitant]
     Active Substance: TEMAZEPAM
     Dosage: 15 MG, 1-2 CAPSULE(S) EVERY DAY AT BEDTIME
     Route: 048
     Dates: start: 20150317
  15. RELPAX [Suspect]
     Active Substance: ELETRIPTAN HYDROBROMIDE
     Dosage: 40 MG, EVERY DAY AS NEEDED
     Route: 048
     Dates: start: 20150227
  16. ACETAMINOPHEN/ASPIRIN/CAFFEINE [Concomitant]
     Indication: MIGRAINE
     Dosage: 2 DF, 50MG/250MG/65MG, AS NEEDED
     Route: 048
  17. CALCIUM 600 + D (3) [Concomitant]
     Dosage: 1 DF, 3X/DAY
     Dates: start: 20141219
  18. EXCEDRIN MIGRAINE [Concomitant]
     Active Substance: ACETAMINOPHEN\ASPIRIN\CAFFEINE
     Dosage: [ACETYLSALICYLIC ACID 250 MG, CAFFEINE 65 MG, PARACETAMOL 250 MG AS NEEDED
     Route: 048
     Dates: start: 20141218
  19. REGLAN [Concomitant]
     Active Substance: METOCLOPRAMIDE HYDROCHLORIDE
     Dosage: 5 MG, AS NEEDED EVERY DAY
     Route: 048
     Dates: start: 20141219
  20. MIRALAX [Concomitant]
     Active Substance: POLYETHYLENE GLYCOL 3350
     Dosage: 17 MG (1 PACKET) EVERY DAY
     Route: 048
     Dates: start: 20141219
  21. FLAXSEED [Concomitant]
     Active Substance: FLAX SEED
     Dosage: 1000 MG, 2X/DAY
     Route: 048
     Dates: start: 20141219
  22. VOLTAREN 1 % TOPICAL GEL [Concomitant]
     Dosage: 2 G, 4X/DAY
     Route: 061
     Dates: start: 20141219
  23. ADVIL [Concomitant]
     Active Substance: IBUPROFEN
     Dosage: 200 MG, AS NEEDED
     Route: 048
     Dates: start: 20141218

REACTIONS (7)
  - Spinal disorder [Not Recovered/Not Resolved]
  - Intentional product misuse [Unknown]
  - Migraine [Not Recovered/Not Resolved]
  - Drug effect incomplete [Not Recovered/Not Resolved]
  - Abdominal discomfort [Not Recovered/Not Resolved]
  - Nausea [Not Recovered/Not Resolved]
  - Condition aggravated [Not Recovered/Not Resolved]

NARRATIVE: CASE EVENT DATE: 2014
